FAERS Safety Report 24121617 (Version 1)
Quarter: 2024Q3

REPORT INFORMATION
  Report Type: Report from Study
  Country: US (occurrence: None)
  Receive Date: 20240722
  Receipt Date: 20240722
  Transmission Date: 20241017
  Serious: Yes (Other)
  Sender: ASTRAZENECA
  Company Number: 2020SF48024

PATIENT
  Age: 26260 Day
  Sex: Male

DRUGS (1)
  1. TAGRISSO [Suspect]
     Active Substance: OSIMERTINIB
     Indication: Non-small cell lung cancer
     Route: 048
     Dates: start: 20201019

REACTIONS (16)
  - Dehydration [Unknown]
  - Haemoglobin decreased [Unknown]
  - Syncope [Unknown]
  - Hypotension [Unknown]
  - Blood sodium increased [Unknown]
  - Blood chloride abnormal [Unknown]
  - Dizziness [Unknown]
  - Fatigue [Unknown]
  - Lethargy [Unknown]
  - Dysgeusia [Unknown]
  - Decreased appetite [Unknown]
  - Heart rate increased [Unknown]
  - Cough [Unknown]
  - Back pain [Unknown]
  - Peripheral coldness [Unknown]
  - Pyrexia [Unknown]

NARRATIVE: CASE EVENT DATE: 20201102
